FAERS Safety Report 10045837 (Version 2)
Quarter: 2014Q1

REPORT INFORMATION
  Report Type: Spontaneous
  Country: US (occurrence: US)
  Receive Date: 20140328
  Receipt Date: 20140328
  Transmission Date: 20141002
  Serious: Yes (Death)
  Sender: FDA-Public Use
  Company Number: US-GE HEALTHCARE MEDICAL DIAGNOSTICS-OSCN-PR-0807S-0445

PATIENT
  Age: 49 Year
  Sex: Female

DRUGS (13)
  1. OMNISCAN [Suspect]
     Indication: CONVULSION
     Route: 042
     Dates: start: 20050508, end: 20050508
  2. OMNISCAN [Suspect]
     Indication: RENAL FAILURE
     Route: 042
     Dates: start: 20061005, end: 20061005
  3. OMNISCAN [Suspect]
     Indication: PAIN IN EXTREMITY
     Route: 042
     Dates: start: 20061204, end: 20061204
  4. GADOLINIUM (UNSPECIFIED) [Suspect]
     Indication: PRODUCT USED FOR UNKNOWN INDICATION
     Route: 042
     Dates: start: 20061005, end: 20061005
  5. FEOSOL [Concomitant]
  6. DIOVAN [Concomitant]
  7. EPOGEN [Concomitant]
  8. PROCRIT [Concomitant]
  9. IRON [Concomitant]
  10. RENAGEL [Concomitant]
  11. VASOTEC [Concomitant]
  12. PREDNISONE [Concomitant]
  13. REPLIVA [Concomitant]

REACTIONS (1)
  - Nephrogenic systemic fibrosis [Fatal]
